FAERS Safety Report 8757859 (Version 1)
Quarter: 2012Q4

REPORT INFORMATION
  Report Type: 
  Country: PL (occurrence: PL)
  Receive Date: 20120828
  Receipt Date: 20120828
  Transmission Date: 20130627
  Serious: Yes (Hospitalization)
  Sender: FDA-Public Use
  Company Number: PL-WATSON-2012-14902

PATIENT
  Age: 35 Year
  Sex: Female

DRUGS (1)
  1. CAPTOPRIL (UNKNOWN) [Suspect]
     Indication: HYPERTENSION
     Dosage: 75 mg, daily
     Route: 065

REACTIONS (2)
  - Hypoglycaemic coma [Recovered/Resolved]
  - Insulin autoimmune syndrome [Recovered/Resolved]
